FAERS Safety Report 18316404 (Version 1)
Quarter: 2020Q3

REPORT INFORMATION
  Report Type: Report from Study
  Country: None (occurrence: PL)
  Receive Date: 20200927
  Receipt Date: 20200927
  Transmission Date: 20201103
  Serious: Yes (Other)
  Sender: FDA-Public Use
  Company Number: PL-BAUSCH-BL-2020-026932

PATIENT
  Age: 15 Year
  Sex: Female

DRUGS (1)
  1. PENICILLAMINE [Suspect]
     Active Substance: PENICILLAMINE
     Indication: HEPATITIS ACUTE
     Dosage: ONE MONTH LATER
     Route: 065

REACTIONS (1)
  - Neutropenia [Unknown]
